FAERS Safety Report 14894849 (Version 2)
Quarter: 2018Q4

REPORT INFORMATION
  Report Type: Report from Study
  Country: None (occurrence: BR)
  Receive Date: 20180515
  Receipt Date: 20181211
  Transmission Date: 20190204
  Serious: Yes (Other)
  Sender: FDA-Public Use
  Company Number: BR-ABBVIE-18K-020-2352007-00

PATIENT
  Age: 33 Year
  Sex: Female
  Weight: 53 kg

DRUGS (2)
  1. MIOSAN [Concomitant]
     Active Substance: CYCLOBENZAPRINE
     Indication: ANKYLOSING SPONDYLITIS
     Route: 048
  2. HUMIRA [Suspect]
     Active Substance: ADALIMUMAB
     Indication: ANKYLOSING SPONDYLITIS
     Route: 058
     Dates: start: 20110104, end: 20180228

REACTIONS (10)
  - Crohn^s disease [Unknown]
  - Back pain [Not Recovered/Not Resolved]
  - Immunodeficiency [Unknown]
  - Candida infection [Recovered/Resolved]
  - Ectopic pregnancy [Unknown]
  - Live birth [Unknown]
  - Exposure during pregnancy [Unknown]
  - Arthralgia [Not Recovered/Not Resolved]
  - Ankylosing spondylitis [Recovered/Resolved]
  - Drug effect decreased [Unknown]

NARRATIVE: CASE EVENT DATE: 20141028
